FAERS Safety Report 8203088 (Version 7)
Quarter: 2013Q3

REPORT INFORMATION
  Report Type: Report from Study
  Country: FR (occurrence: FR)
  Receive Date: 20111027
  Receipt Date: 20130725
  Transmission Date: 20140515
  Serious: Yes (Hospitalization, Disabling, Other)
  Sender: FDA-Public Use
  Company Number: FR-VERTEX PHARMACEUTICALS INC.-AE-2011-002120

PATIENT
  Age: 64 Year
  Sex: Male
  Weight: 63 kg

DRUGS (11)
  1. VX-950 (TELAPREVIR) [Suspect]
     Indication: HEPATITIS C
     Dosage: 750 MG, TID, TABLET
     Route: 048
     Dates: start: 20110728, end: 20111003
  2. PEGASYS [Suspect]
     Indication: HEPATITIS C
     Dosage: 180 ?G, QW
     Dates: start: 20110728, end: 20120622
  3. RIBAVIRIN [Suspect]
     Indication: HEPATITIS C
     Dosage: 1000 MG, QD
     Dates: start: 20110728, end: 20120622
  4. ZANEXTRA [Concomitant]
     Indication: HYPERTENSION
     Dosage: 20 MG, QD
     Route: 048
     Dates: start: 2010
  5. DEROXAT [Concomitant]
     Indication: DEPRESSION
     Dosage: 30 MG, QD
     Route: 048
     Dates: start: 2010, end: 201107
  6. DEROXAT [Concomitant]
     Dosage: 1.5 DF, UNK
     Route: 048
  7. PRAVASTATIN [Concomitant]
     Indication: DYSLIPIDAEMIA
     Dosage: 10 MG, QD
     Route: 048
     Dates: end: 20110922
  8. PRAVASTATIN [Concomitant]
     Dosage: 1 DF, UNK
     Route: 048
  9. XANAX [Concomitant]
     Indication: DEPRESSION
     Dosage: 0.25 MG, TID
     Route: 048
     Dates: start: 2010, end: 201107
  10. XANAX [Concomitant]
     Dosage: 2 DF, QD
     Route: 048
  11. KARDEGIC [Concomitant]
     Indication: ARTERIAL DISORDER
     Dosage: 75 MG, QD
     Route: 048
     Dates: start: 2010

REACTIONS (5)
  - Anaemia [Recovered/Resolved]
  - Vertigo [Recovered/Resolved]
  - Asthenia [Recovered/Resolved]
  - Dyspnoea [Recovered/Resolved]
  - Adverse event [Unknown]
